FAERS Safety Report 9692906 (Version 1)
Quarter: 2013Q4

REPORT INFORMATION
  Report Type: Spontaneous
  Country: US (occurrence: None)
  Receive Date: 20131115
  Receipt Date: 20131115
  Transmission Date: 20140711
  Serious: No
  Sender: FDA-Public Use
  Company Number: None

PATIENT
  Age: 55 Year
  Sex: Male
  Weight: 72.58 kg

DRUGS (5)
  1. NORCO [Suspect]
     Indication: PAIN
     Dosage: 10-325  1 PILL  EVERY FOUR HOURS BY MOUTH
     Route: 048
     Dates: start: 2003
  2. PRAVASTATIN SODIUM [Concomitant]
  3. B-12 [Concomitant]
  4. OSTEO BI-FLEX [Concomitant]
  5. ASPIRIN [Concomitant]

REACTIONS (2)
  - Product quality issue [None]
  - Product quality issue [None]
